FAERS Safety Report 17828106 (Version 5)
Quarter: 2020Q3

REPORT INFORMATION
  Report Type: Report from Study
  Country: FR (occurrence: FR)
  Receive Date: 20200527
  Receipt Date: 20200925
  Transmission Date: 20201102
  Serious: Yes (Other)
  Sender: FDA-Public Use
  Company Number: FR-ROCHE-2606235

PATIENT
  Age: 72 Year
  Sex: Female

DRUGS (3)
  1. BLINDED ATEZOLIZUMAB [Suspect]
     Active Substance: ATEZOLIZUMAB
     Indication: OVARIAN CANCER
     Dosage: THE FIRST DOSE OF ATEZOLIZUMAB WAS ADMINISTERED ON 13/AUG/2019?LAST DOSE OF BLINDED ATEZOLIZUMAB ADM
     Route: 042
     Dates: start: 20190813, end: 20200427
  2. BLINDED ATEZOLIZUMAB [Suspect]
     Active Substance: ATEZOLIZUMAB
     Dosage: THE FIRST DOSE OF ATEZOLIZUMAB WAS ADMINISTERED ON 13/AUG/2019?THE DOSE OF ATEZOLIZUMAB WAS REINTROD
     Route: 042
     Dates: start: 20200608
  3. BEVACIZUMAB. [Suspect]
     Active Substance: BEVACIZUMAB
     Indication: OVARIAN CANCER
     Dosage: THE FIRST DOSE OF BEVACIZUMAB WAS ADMINISTERED ON 13/AUG/2019?LAST DOSE OF BEVACIZUMAB ADMINISTERED
     Route: 042
     Dates: start: 20190813, end: 20200427

REACTIONS (2)
  - Aspartate aminotransferase increased [Recovered/Resolved]
  - Transaminases increased [Not Recovered/Not Resolved]

NARRATIVE: CASE EVENT DATE: 20200515
